FAERS Safety Report 22245824 (Version 1)
Quarter: 2023Q2

REPORT INFORMATION
  Report Type: Spontaneous
  Country: US (occurrence: US)
  Receive Date: 20230424
  Receipt Date: 20230424
  Transmission Date: 20230722
  Serious: No
  Sender: FDA-Public Use
  Company Number: US-drreddys-SPO/USA/23/0163434

PATIENT
  Age: 17 Year
  Sex: Female

DRUGS (1)
  1. ZENATANE [Suspect]
     Active Substance: ISOTRETINOIN
     Indication: Acne
     Dosage: RMA ISSUE DATE: 10 NOVEMBER 2022 11:13:59 AM, 04 JANUARY 2023 12:31:16 PM, 04 FEBRUARY 2023 11:27:56

REACTIONS (2)
  - Drug tolerance decreased [Unknown]
  - Epistaxis [Unknown]
